FAERS Safety Report 8473431-0 (Version None)
Quarter: 2012Q2

REPORT INFORMATION
  Report Type: 
  Country: None (occurrence: None)
  Receive Date: 20120628
  Receipt Date: 20120614
  Transmission Date: 20120825
  Serious: Yes (Disabling)
  Sender: FDA-Public Use
  Company Number: US-JNJCP-30000112423

PATIENT
  Age: 50 Year
  Sex: Male

DRUGS (8)
  1. THE CALLER DID NOT WANT TO PROVIDE MEDICATIONS. [Concomitant]
  2. AVEENO POSITIVELY SMOOTH SHOWER AND SHAVE CREAM [Suspect]
     Route: 061
  3. AVEENO SKIN RELIEF BODY WASH FRAGRANCE FREE [Suspect]
     Route: 061
  4. AVEENO SKIN RELIEF MOISTURIZING LOTION WITH COOLING MENTHOL [Suspect]
     Route: 061
  5. AVEENO SKIN RELIEF BODY WASH [Suspect]
     Route: 061
  6. AVEENO POSITIVELY SMOOTH SHAVE GEL [Suspect]
     Dosage: ONCE OR TWICE DAILY
     Route: 061
  7. NONE [Concomitant]
  8. AVEENO MOISTURIZING BAR FOR DRY SKIN USA AVMBDSUS [Suspect]
     Route: 061

REACTIONS (3)
  - ANOSMIA [None]
  - AGEUSIA [None]
  - EXPIRED DRUG ADMINISTERED [None]
